FAERS Safety Report 24120480 (Version 2)
Quarter: 2024Q3

REPORT INFORMATION
  Report Type: Spontaneous
  Country: US (occurrence: US)
  Receive Date: 20240722
  Receipt Date: 20240724
  Transmission Date: 20241017
  Serious: Yes (Death, Other)
  Sender: PFIZER
  Company Number: US-PFIZER INC-PV202400094346

PATIENT
  Age: 80 Year
  Sex: Male

DRUGS (3)
  1. TIGECYCLINE [Suspect]
     Active Substance: TIGECYCLINE
     Indication: Evidence based treatment
     Dosage: UNK
     Route: 042
  2. AZITHROMYCIN [Suspect]
     Active Substance: AZITHROMYCIN
     Indication: Evidence based treatment
     Dosage: UNK
     Route: 048
  3. IMIPENEM [Suspect]
     Active Substance: IMIPENEM
     Indication: Evidence based treatment
     Dosage: UNK

REACTIONS (2)
  - Drug intolerance [Fatal]
  - Gastrointestinal disorder [Fatal]
